FAERS Safety Report 5538441-1 (Version None)
Quarter: 2007Q4

REPORT INFORMATION
  Report Type: 
  Country: None (occurrence: None)
  Receive Date: 20071205
  Receipt Date: 20071121
  Transmission Date: 20080405
  Serious: Yes (Other)
  Sender: FDA-Public Use
  Company Number: 8028309

PATIENT
  Age: 9 Year
  Sex: Female
  Weight: 18.6 kg

DRUGS (12)
  1. PREDNISOLONE [Suspect]
     Dosage: 20 MG, PO
     Route: 048
     Dates: start: 19980615
  2. DICLOFENAC [Suspect]
     Dosage: 75 MG; PO
     Route: 048
     Dates: start: 20061005
  3. METHOTREXATE [Suspect]
     Dosage: 12.5 MG 1/2; SC
     Route: 058
     Dates: start: 19980615
  4. TACROLIMUS [Suspect]
     Dosage: 4 MG; PO
     Route: 048
     Dates: start: 20060628
  5. TOCILIZUMAB [Suspect]
     Indication: JUVENILE ARTHRITIS
     Dosage: 8 MG/KG 1/W; IV
     Route: 042
     Dates: start: 20060809, end: 20060821
  6. TOCILIZUMAB [Suspect]
     Indication: JUVENILE ARTHRITIS
     Dosage: 12 MG/KG; IV
     Route: 042
     Dates: start: 20060921
  7. NIFEDIPINE [Concomitant]
  8. ASPIRIN [Concomitant]
  9. CYCLIZINE [Concomitant]
  10. LANSOPRAZOLE [Concomitant]
  11. NAPROXEN [Concomitant]
  12. SUCRALFATE [Concomitant]

REACTIONS (7)
  - BLOOD PRESSURE INCREASED [None]
  - CRYING [None]
  - HEART RATE INCREASED [None]
  - RASH [None]
  - RASH MACULAR [None]
  - RESPIRATORY RATE INCREASED [None]
  - VOMITING [None]
